FAERS Safety Report 25082556 (Version 2)
Quarter: 2025Q1

REPORT INFORMATION
  Report Type: Spontaneous
  Country: CN (occurrence: CN)
  Receive Date: 20250317
  Receipt Date: 20250318
  Transmission Date: 20250409
  Serious: Yes (Hospitalization)
  Sender: ABBVIE
  Company Number: CN-ABBVIE-6173144

PATIENT
  Age: 59 Year
  Sex: Male

DRUGS (1)
  1. DEXAMETHASONE [Suspect]
     Active Substance: DEXAMETHASONE
     Indication: Diabetic retinal oedema
     Route: 050
     Dates: start: 20250303, end: 20250303

REACTIONS (14)
  - Eye pain [Recovering/Resolving]
  - Headache [Unknown]
  - Vomiting [Recovering/Resolving]
  - Visual acuity reduced [Recovering/Resolving]
  - Ocular hyperaemia [Recovering/Resolving]
  - Nausea [Recovering/Resolving]
  - Conjunctival hyperaemia [Recovering/Resolving]
  - Intraocular pressure increased [Recovering/Resolving]
  - Vitreous haze [Recovering/Resolving]
  - Retinal haemorrhage [Recovering/Resolving]
  - Glaucoma [Recovering/Resolving]
  - Vitreous opacities [Recovering/Resolving]
  - Haemorrhage [Recovering/Resolving]
  - Infection [Recovering/Resolving]

NARRATIVE: CASE EVENT DATE: 20250303
